FAERS Safety Report 8070831-8 (Version None)
Quarter: 2012Q1

REPORT INFORMATION
  Report Type: 
  Country: None (occurrence: None)
  Receive Date: 20120125
  Receipt Date: 20120124
  Transmission Date: 20120608
  Serious: Yes (Hospitalization)
  Sender: FDA-Public Use
  Company Number: US-GLAXOSMITHKLINE-A0962979A

PATIENT
  Sex: Female

DRUGS (1)
  1. VOTRIENT [Suspect]
     Dosage: 200MG UNKNOWN
     Route: 065

REACTIONS (2)
  - BILE DUCT STENT INSERTION [None]
  - JAUNDICE [None]
